FAERS Safety Report 7084005-0 (Version None)
Quarter: 2010Q4

REPORT INFORMATION
  Report Type: 
  Country: None (occurrence: None)
  Receive Date: 20101025
  Receipt Date: 20101013
  Transmission Date: 20110411
  Serious: Yes (Life-Threatening, Other)
  Sender: FDA-Public Use
  Company Number: BI-S-20100039

PATIENT
  Age: 52 Year
  Sex: Female

DRUGS (1)
  1. ESTROGEL [Suspect]
     Indication: HOT FLUSH
     Dates: start: 20070513, end: 20070513

REACTIONS (1)
  - MYOCARDIAL ISCHAEMIA [None]
